FAERS Safety Report 8585861-7 (Version None)
Quarter: 2012Q3

REPORT INFORMATION
  Report Type: 
  Country: None (occurrence: None)
  Receive Date: 20120810
  Receipt Date: 20070226
  Transmission Date: 20120928
  Serious: Yes (Other)
  Sender: FDA-Public Use
  Company Number: CO-PFIZER INC-2012191475

PATIENT
  Age: 53 Year
  Sex: Female

DRUGS (9)
  1. ACETYLSALICYLIC ACID [Concomitant]
     Dosage: 100 MG, 1X/DAY
  2. OLMESARTAN MEDOXOMIL AND HYDROCHLOROTHIZIDE [Suspect]
     Indication: HYPERTENSION
     Dosage: 20 MG/12.5 MG, 1X/WEEK
  3. GLIBENCLAMIDE [Concomitant]
     Dosage: 5 MG, 2X/DAY
  4. METOPROLOL TARTRATE [Concomitant]
     Dosage: 100 MG, 2X/DAY
  5. LIPITOR [Suspect]
     Indication: DYSLIPIDAEMIA
     Dosage: 10 MG, 1X/DAY
  6. METFORMIN [Concomitant]
     Dosage: 850 MG, 1X/DAY
  7. NIFEDIPINE [Concomitant]
     Dosage: 30 MG, 2X/DAY
  8. ACCURETIC [Suspect]
     Indication: HYPERTENSION
     Dosage: 20 MG/12.5 MG, 1X/DAY
  9. HYDROCHLOROTHIAZIDE [Concomitant]
     Dosage: 25 MG, 1X/DAY

REACTIONS (4)
  - OBESITY [None]
  - ANGINA UNSTABLE [None]
  - ANGINA PECTORIS [None]
  - HYPERTENSIVE EMERGENCY [None]
